FAERS Safety Report 7393745-5 (Version None)
Quarter: 2011Q2

REPORT INFORMATION
  Report Type: 
  Country: None (occurrence: None)
  Receive Date: 20110405
  Receipt Date: 20110328
  Transmission Date: 20111010
  Serious: Yes (Other)
  Sender: FDA-Public Use
  Company Number: US-ASTELLAS-2011US001237

PATIENT
  Sex: Male
  Weight: 84 kg

DRUGS (5)
  1. ACYCLOVIR [Concomitant]
     Indication: PRODUCT USED FOR UNKNOWN INDICATION
     Dosage: 400 MG, TID
     Route: 065
     Dates: start: 20100714
  2. NOVOLOG [Concomitant]
     Indication: DIABETES MELLITUS
     Dosage: 24 U, BID
     Route: 065
     Dates: start: 20110101
  3. PROGRAF [Suspect]
     Indication: BONE MARROW TRANSPLANT
     Dosage: 5 MG, BID
     Route: 065
     Dates: start: 20100714
  4. SULFAMETHOXAZOLE AND TRIMETHOPRIM [Concomitant]
     Indication: PRODUCT USED FOR UNKNOWN INDICATION
     Dosage: 800 MG, 3XWEEKLY
     Route: 065
     Dates: start: 20100714
  5. RAPAMUNE [Concomitant]
     Indication: BONE MARROW TRANSPLANT
     Dosage: 4 MG, UID/QD
     Route: 065
     Dates: start: 20100714

REACTIONS (2)
  - GRAFT VERSUS HOST DISEASE [None]
  - OFF LABEL USE [None]
